FAERS Safety Report 25387719 (Version 1)
Quarter: 2025Q2

REPORT INFORMATION
  Report Type: Spontaneous
  Country: GR (occurrence: GR)
  Receive Date: 20250603
  Receipt Date: 20250603
  Transmission Date: 20250717
  Serious: Yes (Hospitalization, Other)
  Sender: ABBVIE
  Company Number: GR-ABBVIE-6308154

PATIENT
  Age: 55 Year
  Sex: Male

DRUGS (2)
  1. SKYRIZI [Suspect]
     Active Substance: RISANKIZUMAB-RZAA
     Indication: Product used for unknown indication
     Route: 058
     Dates: start: 20250411
  2. RINVOQ [Suspect]
     Active Substance: UPADACITINIB
     Indication: Psoriatic arthropathy
     Dosage: DURATION TEXT: APPROXIMATELY 2 YEARS
     Route: 048

REACTIONS (4)
  - Renal neoplasm [Not Recovered/Not Resolved]
  - Psoriatic arthropathy [Unknown]
  - Pulmonary embolism [Unknown]
  - Rash [Unknown]
